FAERS Safety Report 8912711 (Version 2)
Quarter: 2013Q3

REPORT INFORMATION
  Report Type: Spontaneous
  Country: NL (occurrence: NL)
  Receive Date: 20121116
  Receipt Date: 20130717
  Transmission Date: 20140515
  Serious: Yes (Other)
  Sender: FDA-Public Use
  Company Number: NL-TEVA-369165ISR

PATIENT
  Age: 78 Year
  Sex: Male

DRUGS (6)
  1. LEVOFLOXACINE 500 MG PCH [Suspect]
     Indication: URINARY TRACT INFECTION
     Dosage: 500 MILLIGRAM DAILY;
     Route: 048
     Dates: start: 20121031, end: 20121104
  2. FENPROCOUMON [Concomitant]
     Dosage: AS PRESCRIBED BY THE THROMBOSIS SERVICE
  3. LANOXIN 0,0625 MG [Concomitant]
     Dosage: 31.25 MICROGRAM DAILY; ONE TABLET EVERY OTHER DAY
  4. BUMETANIDE 2 MG [Concomitant]
     Dosage: 2 MILLIGRAM DAILY;
  5. METOPROLOL 100 MG [Concomitant]
     Dosage: 100 MILLIGRAM DAILY; IN THE MORNING
     Route: 048
  6. METOPROLOL 50 MG [Concomitant]
     Dosage: 50 MILLIGRAM DAILY; IN THE EVENING

REACTIONS (6)
  - International normalised ratio increased [Unknown]
  - Epistaxis [Recovered/Resolved]
  - Myalgia [Unknown]
  - Penis disorder [Recovered/Resolved]
  - Fatigue [Unknown]
  - Tendon pain [Recovered/Resolved]
